FAERS Safety Report 14669276 (Version 1)
Quarter: 2018Q1

REPORT INFORMATION
  Report Type: Report from Study
  Country: CA (occurrence: CA)
  Receive Date: 20180322
  Receipt Date: 20180322
  Transmission Date: 20180509
  Serious: Yes (Hospitalization, Other)
  Sender: FDA-Public Use
  Company Number: CA-JNJFOC-20180212966

PATIENT
  Age: 47 Year
  Sex: Male
  Weight: 73 kg

DRUGS (1)
  1. SIMPONI [Suspect]
     Active Substance: GOLIMUMAB
     Indication: RHEUMATOID ARTHRITIS
     Route: 042
     Dates: start: 20160315

REACTIONS (6)
  - Off label use [Unknown]
  - Product use issue [Unknown]
  - Knee arthroplasty [Not Recovered/Not Resolved]
  - Viral pericarditis [Recovered/Resolved]
  - Pleurisy [Recovered/Resolved]
  - Pleurisy viral [Recovered/Resolved]

NARRATIVE: CASE EVENT DATE: 20160315
